FAERS Safety Report 6753193-5 (Version None)
Quarter: 2010Q2

REPORT INFORMATION
  Report Type: 
  Country: None (occurrence: None)
  Receive Date: 20100603
  Receipt Date: 20100524
  Transmission Date: 20101027
  Serious: Yes (Hospitalization)
  Sender: FDA-Public Use
  Company Number: FI-PFIZER INC-2010059608

PATIENT
  Age: 19 Year
  Sex: Female
  Weight: 64 kg

DRUGS (1)
  1. ZELDOX [Suspect]
     Indication: SCHIZOPHRENIA
     Dosage: 60 MG, 2X/DAY
     Route: 048
     Dates: start: 20091123, end: 20100518

REACTIONS (3)
  - DYSPNOEA [None]
  - PROTRUSION TONGUE [None]
  - SPINAL DISORDER [None]
